FAERS Safety Report 4736396-0 (Version None)
Quarter: 2005Q3

REPORT INFORMATION
  Report Type: 
  Country: None (occurrence: None)
  Receive Date: 20050808
  Receipt Date: 20050727
  Transmission Date: 20060218
  Serious: Yes (Death, Hospitalization)
  Sender: FDA-Public Use
  Company Number: FR-BRISTOL-MYERS SQUIBB COMPANY-13053129

PATIENT
  Age: 53 Year
  Sex: Male
  Weight: 45 kg

DRUGS (14)
  1. BICNU [Suspect]
     Indication: LYMPHOMA
     Route: 042
     Dates: start: 20050330, end: 20050330
  2. ALKERAN [Suspect]
     Indication: LYMPHOMA
     Route: 042
     Dates: start: 20050404, end: 20050404
  3. ARACYTINE [Suspect]
     Indication: LYMPHOMA
     Route: 042
     Dates: start: 20050331, end: 20050403
  4. VEPESIDE-SANDOZ [Suspect]
     Indication: LYMPHOMA
     Dates: start: 20050331, end: 20050403
  5. CIFLOX [Suspect]
     Dates: start: 20050416
  6. VFEND [Suspect]
     Dates: start: 20050416
  7. MOTILIUM [Concomitant]
  8. LOVENOX [Concomitant]
  9. SKENAN [Concomitant]
  10. GRANOCYTE [Concomitant]
  11. MABTHERA [Concomitant]
  12. ENDOXAN [Concomitant]
  13. DOXORUBICIN HCL [Concomitant]
  14. VINCRISTINE [Concomitant]

REACTIONS (3)
  - ACUTE RESPIRATORY DISTRESS SYNDROME [None]
  - DEATH [None]
  - PNEUMONIA [None]
